FAERS Safety Report 8519136-9 (Version None)
Quarter: 2012Q3

REPORT INFORMATION
  Report Type: 
  Country: None (occurrence: None)
  Receive Date: 20120718
  Receipt Date: 20120711
  Transmission Date: 20120928
  Serious: No
  Sender: FDA-Public Use
  Company Number: US-B.I. PHARMACEUTICALS,INC./RIDGEFIELD-2011-BP-21521BP

PATIENT
  Age: 81 Year
  Sex: Male
  Weight: 121.1 kg

DRUGS (8)
  1. PRAZOSIN [Concomitant]
     Indication: PROSTATIC DISORDER
  2. MULTI-VITAMIN [Concomitant]
  3. GLIMEPIRIDE [Concomitant]
     Indication: DIABETES MELLITUS
  4. LEVOTHYROXINE SODIUM [Concomitant]
     Indication: HYPOTHYROIDISM
  5. LIPITOR [Concomitant]
     Indication: BLOOD CHOLESTEROL INCREASED
  6. ASPIRIN [Concomitant]
  7. FISH OIL [Concomitant]
  8. TRADJENTA [Suspect]
     Indication: DIABETES MELLITUS
     Dosage: 5 MG
     Dates: start: 20110818

REACTIONS (1)
  - PHARYNGEAL OEDEMA [None]
